FAERS Safety Report 9551551 (Version 1)
Quarter: 2013Q3

REPORT INFORMATION
  Report Type: Spontaneous
  Country: US (occurrence: None)
  Receive Date: 20130724
  Receipt Date: 20130724
  Transmission Date: 20140515
  Serious: Yes (Other)
  Sender: FDA-Public Use
  Company Number: PHEH2013US005402

PATIENT
  Sex: Female

DRUGS (5)
  1. AFINITOR (RAD) UNKNOWN [Suspect]
     Indication: TUBEROUS SCLEROSIS
     Route: 048
     Dates: start: 20120901
  2. LAMOTRIGINE (LAMOTRIGINE) [Concomitant]
  3. CELEXA (CITALOPRAM HYDROBROMIDE) [Concomitant]
  4. AYGESTIN (NORETHISTERONE ACETATE) [Concomitant]
  5. DIASTAT (DIAZEPAM) [Concomitant]

REACTIONS (3)
  - Convulsion [None]
  - Sinusitis [None]
  - Stomatitis [None]
